FAERS Safety Report 24219973 (Version 2)
Quarter: 2024Q4

REPORT INFORMATION
  Report Type: Report from Study
  Country: US (occurrence: US)
  Receive Date: 20240817
  Receipt Date: 20241211
  Transmission Date: 20250115
  Serious: Yes (Death, Other)
  Sender: AUROBINDO
  Company Number: US-AUROBINDO-AUR-APL-2024-039660

PATIENT

DRUGS (6)
  1. MELPHALAN [Suspect]
     Active Substance: MELPHALAN
     Indication: Chemotherapy
     Dosage: 140 MILLIGRAM/SQ. METER (DAY -1)
     Route: 065
  2. MELPHALAN [Suspect]
     Active Substance: MELPHALAN
     Indication: Myeloid metaplasia
  3. CLOFARABINE [Suspect]
     Active Substance: CLOFARABINE
     Indication: Allogenic stem cell transplantation
     Dosage: 30 MILLIGRAM/SQ. METER (DAYS -6 TO -2)
     Route: 065
  4. CLOFARABINE [Suspect]
     Active Substance: CLOFARABINE
     Indication: Myeloid metaplasia
  5. TACROLIMUS [Concomitant]
     Active Substance: TACROLIMUS
     Indication: Graft versus host disease
     Dosage: UNK
     Route: 065
  6. METHOTREXATE [Concomitant]
     Active Substance: METHOTREXATE
     Indication: Graft versus host disease
     Dosage: UNK
     Route: 065

REACTIONS (4)
  - Acute kidney injury [Fatal]
  - Multiple organ dysfunction syndrome [Fatal]
  - Sepsis [Fatal]
  - Off label use [Unknown]
